FAERS Safety Report 5276407-X (Version None)
Quarter: 2007Q1

REPORT INFORMATION
  Report Type: 
  Country: None (occurrence: None)
  Receive Date: 20061213
  Receipt Date: 20030924
  Transmission Date: 20070707
  Serious: No
  Sender: FDA-Public Use
  Company Number: 2003UW12135

PATIENT
  Age: 91 Year
  Sex: Female

DRUGS (1)
  1. SEROQUEL [Suspect]
     Dosage: 25 MG BID PO
     Route: 048

REACTIONS (1)
  - SYNCOPE [None]
